FAERS Safety Report 9140752 (Version 1)
Quarter: 2013Q1

REPORT INFORMATION
  Report Type: Spontaneous
  Country: US (occurrence: None)
  Receive Date: 20130227
  Receipt Date: 20130227
  Transmission Date: 20140127
  Serious: Yes (Death)
  Sender: FDA-Public Use
  Company Number: SYM-2013-00061

PATIENT
  Age: 45 Year
  Sex: Male

DRUGS (8)
  1. BUPROPION (BUPROPION) (UNKNOWN) (BUPROPION) [Suspect]
     Indication: PRODUCT USED FOR UNKNOWN INDICATION
     Dosage: NOT REPORTED,  INGESTION
  2. VENLAFAXINE (VENLAFAXINE HYDROCHLORIDE) (UNKNOWN) (VENLAFAXINE HYDROCHLORIDE) [Suspect]
     Dosage: NOT REPORTED,  ORAL
     Route: 048
  3. TOPIRAMAE (TOPIRAMATE) (TOPIRAMATE) [Suspect]
     Dosage: NOT REPORTED,  ORAL
     Route: 048
  4. ALPRAZOLAM (ALPRAZOLAM) (UNKNOWN) (ALPRAZOLAM) [Suspect]
     Dosage: NOT REPORTED,  ORAL
     Route: 048
  5. MECLIZINE (MECLOZINE HYDROCHLORIDE) (UNKNOWN) (MECLOZINE HYDROCHLORIDE) [Suspect]
     Dosage: NOT REPORTED,  ORAL
     Route: 048
  6. DIPHENHYDRAMINE (DIPHENHYDRAMINE HYDROCHLORIDE) (UNKNOWN) (DIPHENHYDRAMINE HYDROCHLORIDE) [Suspect]
     Dosage: NOT REPORTED,  ORAL
     Route: 048
  7. ACETAMINOPHEN (PARACETAMOL) (UNKNOWN) (PARACETAMOL) [Suspect]
     Dosage: NOT REPORTED,  ORAL
     Route: 048
  8. CARBON MONOXIDE (CARBON MONOXIDE) (CARBON MONOXIDE) [Suspect]
     Dosage: INHALATION
     Route: 055

REACTIONS (2)
  - Poisoning [None]
  - Completed suicide [None]
